FAERS Safety Report 21083552 (Version 1)
Quarter: 2022Q3

REPORT INFORMATION
  Report Type: Spontaneous
  Country: US (occurrence: None)
  Receive Date: 20220714
  Receipt Date: 20220714
  Transmission Date: 20221026
  Serious: No
  Sender: FDA-Public Use
  Company Number: None

PATIENT
  Age: 67 Year
  Sex: Male

DRUGS (1)
  1. METFORMIN HYDROCHLORIDE [Suspect]
     Active Substance: METFORMIN HYDROCHLORIDE
     Indication: Diabetes mellitus
     Dosage: 1 TAB BID PO?
     Route: 048
     Dates: start: 20211112, end: 20220418

REACTIONS (3)
  - Dyspnoea [None]
  - Throat tightness [None]
  - Anaphylactic reaction [None]

NARRATIVE: CASE EVENT DATE: 20220418
